FAERS Safety Report 15091230 (Version 1)
Quarter: 2018Q2

REPORT INFORMATION
  Report Type: Spontaneous
  Country: US (occurrence: US)
  Receive Date: 20180629
  Receipt Date: 20180629
  Transmission Date: 20180711
  Serious: No
  Sender: FDA-Public Use
  Company Number: US-AMGEN-USASP2015061180

PATIENT
  Age: 73 Year
  Sex: Female
  Weight: 46.26 kg

DRUGS (4)
  1. EVISTA [Concomitant]
     Active Substance: RALOXIFENE HYDROCHLORIDE
     Indication: OSTEOPOROSIS
     Dosage: 60 MG, QD
     Route: 048
     Dates: start: 2005
  2. BACLOFEN. [Concomitant]
     Active Substance: BACLOFEN
     Indication: MUSCLE SPASMS
     Dosage: UNK UNK, TID
     Route: 048
  3. PROLIA [Suspect]
     Active Substance: DENOSUMAB
     Indication: PRODUCT USED FOR UNKNOWN INDICATION
     Dosage: 60 MG, Q6MO
     Route: 058
     Dates: start: 20120329, end: 20130410
  4. AMANTADINE                         /00055902/ [Concomitant]
     Active Substance: AMANTADINE
     Indication: MULTIPLE SCLEROSIS
     Dosage: 100 MG, TID
     Route: 048

REACTIONS (4)
  - Hypocalcaemia [Recovered/Resolved]
  - Pain in jaw [Recovered/Resolved]
  - Rash [Recovered/Resolved]
  - Muscular weakness [Recovered/Resolved]

NARRATIVE: CASE EVENT DATE: 20130410
